FAERS Safety Report 12611051 (Version 1)
Quarter: 2016Q3

REPORT INFORMATION
  Report Type: Spontaneous
  Country: US (occurrence: US)
  Receive Date: 20160801
  Receipt Date: 20160801
  Transmission Date: 20161109
  Serious: Yes (Other)
  Sender: FDA-Public Use
  Company Number: ALCN2012US002920

PATIENT
  Age: 71 Year
  Sex: Male

DRUGS (10)
  1. BSS [Suspect]
     Active Substance: CALCIUM CHLORIDE\MAGNESIUM CHLORIDE\POTASSIUM CHLORIDE\SODIUM ACETATE\SODIUM CHLORIDE\SODIUM CITRATE
     Indication: INTRAOCULAR LENS IMPLANT
     Route: 031
     Dates: start: 20120117, end: 20120117
  2. EPINEPHRINE. [Concomitant]
     Active Substance: EPINEPHRINE
     Route: 031
     Dates: start: 20120117, end: 20120117
  3. MIOSTAT [Suspect]
     Active Substance: CARBACHOL
     Indication: INTRAOCULAR LENS IMPLANT
     Route: 031
     Dates: start: 20120117, end: 20120117
  4. MIOCHOL [Concomitant]
     Active Substance: ACETYLCHOLINE CHLORIDE
     Route: 031
     Dates: start: 20120117, end: 20120117
  5. BSS PLUS [Suspect]
     Active Substance: CALCIUM CHLORIDE\DEXTROSE\MAGNESIUM CHLORIDE\OXIGLUTATIONE\POTASSIUM CHLORIDE\SODIUM BICARBONATE\SODIUM CHLORIDE\SODIUM PHOSPHATE\SODIUM PHOSPHATE, DIBASIC
     Indication: INTRAOCULAR LENS IMPLANT
     Route: 031
     Dates: start: 20120117, end: 20120117
  6. DEXAMETHASONE. [Concomitant]
     Active Substance: DEXAMETHASONE
     Route: 031
     Dates: start: 20120117, end: 20120117
  7. CEFAZOLIN [Concomitant]
     Active Substance: CEFAZOLIN
     Route: 031
     Dates: start: 20120117, end: 20120117
  8. LIDOCAINE 1% [Concomitant]
     Active Substance: LIDOCAINE
     Route: 031
     Dates: start: 20120117, end: 20120117
  9. IOPIDINE [Concomitant]
     Active Substance: APRACLONIDINE HYDROCHLORIDE
     Route: 031
     Dates: start: 20120117, end: 20120117
  10. TIMOPTIC [Concomitant]
     Active Substance: TIMOLOL MALEATE
     Route: 031
     Dates: start: 20120117, end: 20120117

REACTIONS (2)
  - Toxic anterior segment syndrome [Recovered/Resolved]
  - Medication error [Recovered/Resolved]

NARRATIVE: CASE EVENT DATE: 20120118
